FAERS Safety Report 4492602-1 (Version None)
Quarter: 2004Q4

REPORT INFORMATION
  Report Type: 
  Country: None (occurrence: None)
  Receive Date: 20041029
  Receipt Date: 20041022
  Transmission Date: 20050328
  Serious: Yes (Hospitalization)
  Sender: FDA-Public Use
  Company Number: 2004-10-0712

PATIENT
  Age: 37 Year
  Sex: Male
  Weight: 79 kg

DRUGS (2)
  1. TEMODAL [Suspect]
     Indication: GLIOBLASTOMA
     Dosage: 150 MG/M2 ORAL
     Route: 048
     Dates: start: 20041001
  2. RADIATION THERAPY NO DOSE FORM [Suspect]
     Indication: GLIOBLASTOMA
     Dosage: X-RAY THERAPY
     Dates: start: 20041001

REACTIONS (4)
  - BRAIN OEDEMA [None]
  - MALIGNANT NEOPLASM PROGRESSION [None]
  - NAUSEA [None]
  - VOMITING [None]
